FAERS Safety Report 8040819-1 (Version None)
Quarter: 2012Q1

REPORT INFORMATION
  Report Type: 
  Country: None (occurrence: None)
  Receive Date: 20120112
  Receipt Date: 20120103
  Transmission Date: 20120608
  Serious: Yes (Hospitalization)
  Sender: FDA-Public Use
  Company Number: PH-BRISTOL-MYERS SQUIBB COMPANY-16319329

PATIENT
  Age: 38 Year
  Sex: Male

DRUGS (2)
  1. RISPERIDONE [Concomitant]
     Dates: start: 20111222, end: 20111229
  2. ABILIFY [Suspect]
     Indication: SCHIZOPHRENIA
     Dosage: INITIALLY GIVEN 6MG THEN INCREASED TO 12MG 05DEC2011-22DEC2011:6MG 23DEC2011:12MG/D
     Route: 048
     Dates: start: 20111205

REACTIONS (1)
  - SCHIZOPHRENIA [None]
